FAERS Safety Report 5045358-8 (Version None)
Quarter: 2006Q3

REPORT INFORMATION
  Report Type: 
  Country: None (occurrence: None)
  Receive Date: 20060707
  Receipt Date: 20060215
  Transmission Date: 20061208
  Serious: No
  Sender: FDA-Public Use
  Company Number: US-GLAXOSMITHKLINE-A0593881A

PATIENT
  Age: 82 Year
  Sex: Female
  Weight: 90.5 kg

DRUGS (8)
  1. LOTRONEX [Suspect]
     Indication: IRRITABLE BOWEL SYNDROME
     Dosage: 1MG PER DAY
     Route: 048
  2. ISOSORBIDE [Concomitant]
  3. ACCUPRIL [Concomitant]
  4. ATENOLOL [Concomitant]
  5. COUMADIN [Concomitant]
  6. NITROSTAT [Concomitant]
  7. PHENERGAN [Concomitant]
  8. DETROL [Concomitant]
     Route: 065

REACTIONS (1)
  - BLADDER SPASM [None]
